FAERS Safety Report 13292234 (Version 1)
Quarter: 2017Q1

REPORT INFORMATION
  Report Type: Spontaneous
  Country: US (occurrence: US)
  Receive Date: 20170303
  Receipt Date: 20170303
  Transmission Date: 20170428
  Serious: No
  Sender: FDA-Public Use
  Company Number: US-TEVA-743632ACC

PATIENT
  Age: 23 Year
  Sex: Male
  Weight: 63.56 kg

DRUGS (2)
  1. NUVIGIL [Suspect]
     Active Substance: ARMODAFINIL
     Dates: start: 2012
  2. NUVIGIL [Suspect]
     Active Substance: ARMODAFINIL
     Indication: SHIFT WORK DISORDER
     Dates: start: 20170124

REACTIONS (1)
  - Drug ineffective [Unknown]

NARRATIVE: CASE EVENT DATE: 20170124
